FAERS Safety Report 17653364 (Version 1)
Quarter: 2020Q2

REPORT INFORMATION
  Report Type: Spontaneous
  Country: US (occurrence: US)
  Receive Date: 20200410
  Receipt Date: 20200410
  Transmission Date: 20200713
  Serious: No
  Sender: FDA-Public Use
  Company Number: US-SA-2020SA090761

PATIENT
  Sex: Female

DRUGS (1)
  1. ALLEGRA PEDIATRICO [Suspect]
     Active Substance: FEXOFENADINE HYDROCHLORIDE
     Dosage: 30 ML, BID
     Route: 065

REACTIONS (2)
  - Dysphagia [Unknown]
  - Therapeutic response unexpected [Unknown]
